FAERS Safety Report 8984022 (Version 1)
Quarter: 2012Q4

REPORT INFORMATION
  Report Type: Spontaneous
  Country: US (occurrence: None)
  Receive Date: 20121212
  Receipt Date: 20121212
  Transmission Date: 20130627
  Serious: Yes (Death, Other)
  Sender: FDA-Public Use
  Company Number: TPA2012A09550

PATIENT
  Age: 79 Year
  Sex: Male
  Weight: 94.8 kg

DRUGS (6)
  1. ACTOS (PIOGLITAZONE HYDROCHLORIDE) [Suspect]
     Indication: TYPE II DIABETES MELLITUS
     Dates: start: 200805, end: 201009
  2. METFORMIN (METFORMIN) [Concomitant]
  3. AVANDIA [Concomitant]
  4. GLUCOPHAGE (METFORMIN HYDROCHLORIDE) [Concomitant]
  5. DIABETA (GLIBENCLAMIDE) [Concomitant]
  6. GLUCOTROL (GLIPIZIDE) [Concomitant]

REACTIONS (1)
  - Bladder cancer [None]
